FAERS Safety Report 22019412 (Version 1)
Quarter: 2023Q1

REPORT INFORMATION
  Report Type: Report from Study
  Country: US (occurrence: US)
  Receive Date: 20230222
  Receipt Date: 20230222
  Transmission Date: 20230417
  Serious: Yes (Hospitalization)
  Sender: FDA-Public Use
  Company Number: US-ORPHANEU-2023000907

PATIENT

DRUGS (10)
  1. CYSTADANE [Suspect]
     Active Substance: BETAINE
     Indication: Vitamin B complex deficiency
     Dosage: 7 GRAM, QD
     Route: 065
     Dates: start: 20141007
  2. CYSTADANE [Suspect]
     Active Substance: BETAINE
     Indication: Off label use
  3. FOLIC ACID [Concomitant]
     Active Substance: FOLIC ACID
     Indication: Product used for unknown indication
  4. FYCOMPA [Concomitant]
     Active Substance: PERAMPANEL
     Indication: Product used for unknown indication
     Dosage: UNK
  5. GABAPENTIN [Concomitant]
     Active Substance: GABAPENTIN
     Indication: Product used for unknown indication
  6. HYDROXOCOBALAMIN [Concomitant]
     Active Substance: HYDROXOCOBALAMIN
     Indication: Product used for unknown indication
  7. LEVOCARNITINE [Concomitant]
     Active Substance: LEVOCARNITINE
     Indication: Product used for unknown indication
  8. METHIONINE [Concomitant]
     Active Substance: METHIONINE
     Indication: Product used for unknown indication
  9. VALINE [Concomitant]
     Active Substance: VALINE
     Indication: Product used for unknown indication
  10. KEPPRA [Concomitant]
     Active Substance: LEVETIRACETAM
     Indication: Product used for unknown indication

REACTIONS (1)
  - Weight decreased [Unknown]
